FAERS Safety Report 8942195 (Version 1)
Quarter: 2012Q4

REPORT INFORMATION
  Report Type: Spontaneous
  Country: US (occurrence: None)
  Receive Date: 20121129
  Receipt Date: 20121129
  Transmission Date: 20130627
  Serious: Yes (Life-Threatening)
  Sender: FDA-Public Use
  Company Number: None

PATIENT
  Age: 44 Year
  Sex: Male
  Weight: 133.81 kg

DRUGS (3)
  1. METHADONE [Suspect]
     Indication: INTERVERTEBRAL DISC DISORDER
     Route: 048
     Dates: start: 20040203, end: 20121123
  2. METHADONE [Suspect]
     Indication: RUPTURED INTERVERTEBRAL DISC
     Route: 048
     Dates: start: 20040203, end: 20121123
  3. METHADONE [Suspect]
     Indication: BACK PAIN
     Route: 048
     Dates: start: 20040203, end: 20121123

REACTIONS (5)
  - Flushing [None]
  - Chest discomfort [None]
  - Heart rate increased [None]
  - Product substitution issue [None]
  - Product quality issue [None]
